FAERS Safety Report 12191830 (Version 2)
Quarter: 2016Q2

REPORT INFORMATION
  Report Type: Spontaneous
  Country: US (occurrence: US)
  Receive Date: 20160318
  Receipt Date: 20160415
  Transmission Date: 20160815
  Serious: No
  Sender: FDA-Public Use
  Company Number: US-PFIZER INC-2016153340

PATIENT
  Age: 51 Year
  Sex: Female

DRUGS (2)
  1. FEMARA [Concomitant]
     Active Substance: LETROZOLE
     Indication: BREAST CANCER STAGE IV
     Dosage: UNK
     Dates: start: 20150507, end: 201507
  2. IBRANCE [Suspect]
     Active Substance: PALBOCICLIB
     Indication: BREAST CANCER STAGE IV
     Dosage: 125 MG, DAILY (X 21 DAYS)
     Route: 048
     Dates: start: 20150507, end: 201507

REACTIONS (2)
  - Breast cancer stage IV [Unknown]
  - Disease progression [Unknown]

NARRATIVE: CASE EVENT DATE: 201507
